FAERS Safety Report 15496677 (Version 1)
Quarter: 2018Q4

REPORT INFORMATION
  Report Type: Spontaneous
  Country: TH (occurrence: TH)
  Receive Date: 20181014
  Receipt Date: 20181014
  Transmission Date: 20190205
  Serious: Yes (Other)
  Sender: FDA-Public Use
  Company Number: TH-009507513-1810THA000914

PATIENT
  Age: 5 Year
  Sex: Female

DRUGS (1)
  1. SINGULAIR [Suspect]
     Active Substance: MONTELUKAST SODIUM
     Indication: SLEEP APNOEA SYNDROME
     Dosage: 4 MG SACHET
     Route: 048
     Dates: start: 20180709, end: 201809

REACTIONS (4)
  - Irritability [Recovered/Resolved]
  - Suicidal ideation [Recovered/Resolved]
  - Screaming [Recovered/Resolved]
  - Nightmare [Recovered/Resolved]

NARRATIVE: CASE EVENT DATE: 2018
